FAERS Safety Report 8200661-5 (Version None)
Quarter: 2012Q1

REPORT INFORMATION
  Report Type: 
  Country: None (occurrence: None)
  Receive Date: 20120307
  Receipt Date: 20120222
  Transmission Date: 20120608
  Serious: Yes (Hospitalization)
  Sender: FDA-Public Use
  Company Number: IMP_05764_2012

PATIENT
  Age: 66 Year
  Sex: Female

DRUGS (5)
  1. LEVOTHYROXINE SODIUM [Concomitant]
  2. INSULIN [Concomitant]
  3. FENOFIBRATE [Suspect]
     Indication: DYSLIPIDAEMIA
     Dosage: DF
     Dates: start: 20100620, end: 20100809
  4. HYDROCORTISONE [Concomitant]
  5. NIFEDIPINE [Concomitant]

REACTIONS (7)
  - PYREXIA [None]
  - RENAL IMPAIRMENT [None]
  - EOSINOPHILIA [None]
  - DRUG RASH WITH EOSINOPHILIA AND SYSTEMIC SYMPTOMS [None]
  - BLOOD LACTATE DEHYDROGENASE INCREASED [None]
  - LEUKOCYTOSIS [None]
  - RASH MACULO-PAPULAR [None]
